FAERS Safety Report 23458063 (Version 2)
Quarter: 2024Q1

REPORT INFORMATION
  Report Type: Spontaneous
  Country: US (occurrence: US)
  Receive Date: 20240130
  Receipt Date: 20240227
  Transmission Date: 20240409
  Serious: Yes (Hospitalization)
  Sender: FDA-Public Use
  Company Number: US-FreseniusKabi-FK202401611

PATIENT
  Age: 43 Year
  Weight: 92.1 kg

DRUGS (6)
  1. VINBLASTINE [Suspect]
     Active Substance: VINBLASTINE
     Indication: Hodgkin^s disease
  2. VINBLASTINE [Suspect]
     Active Substance: VINBLASTINE
     Dosage: ACTUAL FIRST PATIENT FIRST VISIT - OF TREATMENT WAS 12JUL2018.?CYCLE 8-FIRST DOSE DATE WAS 22JAN2020
     Route: 065
  3. DOXORUBICIN HYDROCHLORIDE [Suspect]
     Active Substance: DOXORUBICIN HYDROCHLORIDE
     Indication: Hodgkin^s disease
     Dosage: ACTUAL FIRST PATIENT FIRST VISIT - OF TREATMENT WAS 12JUL2018.?CYCLE 8-FIRST DOSE DATE WAS 22JAN2020
     Route: 065
  4. DACARBAZINE [Suspect]
     Active Substance: DACARBAZINE
     Indication: Hodgkin^s disease
     Dosage: FORM OF ADMIN. POWDER FOR INJECTION?ACTUAL FIRST PATIENT FIRST VISIT - OF TREATMENT WAS 12JUL2018.?C
     Route: 065
  5. BRENTUXIMAB VEDOTIN [Suspect]
     Active Substance: BRENTUXIMAB VEDOTIN
     Indication: Hodgkin^s disease
     Dosage: ACTUAL FIRST PATIENT FIRST VISIT - OF TREATMENT WAS 12JUL2018.?CYCLE 8-FIRST DOSE DATE WAS 22JAN2020
     Route: 065
  6. NIVOLUMAB [Suspect]
     Active Substance: NIVOLUMAB
     Indication: Hodgkin^s disease
     Dosage: ACTUAL FIRST PATIENT FIRST VISIT - OF TREATMENT WAS 12JUL2018.?CYCLE 8-FIRST DOSE DATE WAS 22JAN2020
     Dates: end: 20201021

REACTIONS (1)
  - Pain [Recovering/Resolving]

NARRATIVE: CASE EVENT DATE: 20201218
